FAERS Safety Report 15944546 (Version 1)
Quarter: 2019Q1

REPORT INFORMATION
  Report Type: Report from Study
  Country: US (occurrence: US)
  Receive Date: 20190211
  Receipt Date: 20190211
  Transmission Date: 20190417
  Serious: No
  Sender: FDA-Public Use
  Company Number: US-ACADIA PHARMACEUTICALS INC.-ACA-2018-010729

PATIENT
  Age: 68 Year
  Sex: Male

DRUGS (8)
  1. QUINAPRIL. [Concomitant]
     Active Substance: QUINAPRIL
     Indication: HYPERTENSION
  2. NUPLAZID [Suspect]
     Active Substance: PIMAVANSERIN TARTRATE
     Indication: HALLUCINATION
     Dosage: 34 MG, QD
     Route: 048
     Dates: start: 20181101
  3. NUPLAZID [Suspect]
     Active Substance: PIMAVANSERIN TARTRATE
     Indication: PARKINSON^S DISEASE PSYCHOSIS
  4. NUPLAZID [Suspect]
     Active Substance: PIMAVANSERIN TARTRATE
     Indication: DELUSION
  5. CITALOPRAM [Concomitant]
     Active Substance: CITALOPRAM HYDROBROMIDE
     Indication: DEPRESSION
  6. NORTRIPTYLINE [Concomitant]
     Active Substance: NORTRIPTYLINE
     Indication: DEPRESSION
  7. METOPROLOL. [Concomitant]
     Active Substance: METOPROLOL
     Indication: HYPERTENSION
  8. CARBIDOPA/LEVODOPA [Concomitant]
     Active Substance: CARBIDOPA\LEVODOPA
     Indication: PARKINSON^S DISEASE

REACTIONS (4)
  - Sleep terror [Not Recovered/Not Resolved]
  - Gait disturbance [Not Recovered/Not Resolved]
  - Confusional state [Not Recovered/Not Resolved]
  - Limb discomfort [Not Recovered/Not Resolved]

NARRATIVE: CASE EVENT DATE: 201811
